FAERS Safety Report 18377882 (Version 1)
Quarter: 2020Q4

REPORT INFORMATION
  Report Type: Spontaneous
  Country: US (occurrence: US)
  Receive Date: 20201013
  Receipt Date: 20201013
  Transmission Date: 20210114
  Serious: No
  Sender: FDA-Public Use
  Company Number: US-BAYER-2020-216221

PATIENT
  Age: 96 Year
  Sex: Female

DRUGS (3)
  1. MIRALAX [Suspect]
     Active Substance: POLYETHYLENE GLYCOL 3350
     Indication: GASTROINTESTINAL DISORDER
     Dosage: 2 DF, QD
     Route: 048
     Dates: end: 20200610
  2. ANTICOAGULANT II [Concomitant]
  3. VITAMINS NOS [Concomitant]
     Active Substance: VITAMINS

REACTIONS (3)
  - Diarrhoea [Unknown]
  - Nausea [Recovering/Resolving]
  - Dysgeusia [Not Recovered/Not Resolved]

NARRATIVE: CASE EVENT DATE: 20200610
